FAERS Safety Report 24976033 (Version 1)
Quarter: 2025Q1

REPORT INFORMATION
  Report Type: Spontaneous
  Country: US (occurrence: US)
  Receive Date: 20250217
  Receipt Date: 20250217
  Transmission Date: 20250409
  Serious: Yes (Other)
  Sender: COOPERSURGICAL
  Company Number: US-COOPERSURGICAL, INC.-2025CPS000929

PATIENT
  Age: 37 Year
  Sex: Female
  Weight: 107.94 kg

DRUGS (4)
  1. PARAGARD T 380A [Suspect]
     Active Substance: COPPER
     Indication: Contraception
     Route: 015
     Dates: start: 20151211
  2. BUPROPION [Concomitant]
     Active Substance: BUPROPION
     Dates: start: 202101
  3. NP THYROID [Concomitant]
     Active Substance: LEVOTHYROXINE\LIOTHYRONINE
     Dates: start: 202101
  4. NALTREXONE [Concomitant]
     Active Substance: NALTREXONE
     Dates: start: 202001

REACTIONS (7)
  - Reproductive complication associated with device [Unknown]
  - Device breakage [Recovered/Resolved]
  - Foreign body in reproductive tract [Recovered/Resolved]
  - Complication of device removal [Recovered/Resolved]
  - Emotional disorder [Unknown]
  - Device dislocation [Recovered/Resolved]
  - Pelvic pain [Recovered/Resolved]

NARRATIVE: CASE EVENT DATE: 20240212
